FAERS Safety Report 12077989 (Version 4)
Quarter: 2016Q2

REPORT INFORMATION
  Report Type: Report from Study
  Country: CO (occurrence: CO)
  Receive Date: 20160215
  Receipt Date: 20160607
  Transmission Date: 20160815
  Serious: Yes (Life-Threatening)
  Sender: FDA-Public Use
  Company Number: PHHY2015CO071650

PATIENT
  Age: 60 Year
  Sex: Male
  Weight: 63 kg

DRUGS (3)
  1. AFINITOR [Suspect]
     Active Substance: EVEROLIMUS
     Indication: RENAL CANCER
     Dosage: 10 MG, QD
     Route: 048
     Dates: start: 20150520
  2. AFINITOR [Suspect]
     Active Substance: EVEROLIMUS
     Indication: NEUROENDOCRINE TUMOUR
  3. AFINITOR [Suspect]
     Active Substance: EVEROLIMUS
     Indication: BREAST CANCER
     Dosage: 5 MG, QD
     Route: 048
     Dates: start: 20140908

REACTIONS (13)
  - Skin disorder [Unknown]
  - Stomatitis [Recovered/Resolved]
  - Mouth injury [Unknown]
  - Drug intolerance [Unknown]
  - Blood uric acid increased [Unknown]
  - Feeding disorder [Unknown]
  - Blister [Recovered/Resolved]
  - Throat lesion [Unknown]
  - Dandruff [Unknown]
  - Malaise [Unknown]
  - Apparent death [Unknown]
  - Oral pain [Unknown]
  - Gait disturbance [Unknown]

NARRATIVE: CASE EVENT DATE: 20150604
